FAERS Safety Report 16716106 (Version 1)
Quarter: 2019Q4

REPORT INFORMATION
  Report Type: Spontaneous
  Country: US (occurrence: US)
  Receive Date: 20190817
  Receipt Date: 20190817
  Transmission Date: 20200122
  Serious: Yes (Disabling)
  Sender: FDA-Public Use
  Company Number: None

PATIENT
  Age: 38 Year
  Sex: Female

DRUGS (10)
  1. VITAMIN D [Concomitant]
     Active Substance: VITAMIN D NOS
  2. YACON [Concomitant]
  3. MILK THISTLE [Concomitant]
     Active Substance: DIETARY SUPPLEMENT\HERBALS\MILK THISTLE
  4. DESONIDE. [Suspect]
     Active Substance: DESONIDE
     Indication: ACCIDENTAL EXPOSURE TO PRODUCT
     Dates: start: 20161201, end: 20170522
  5. TRIAMCINOLONE [Suspect]
     Active Substance: TRIAMCINOLONE
  6. FISH OIL [Concomitant]
     Active Substance: FISH OIL
  7. MAGNESIUM [Concomitant]
     Active Substance: MAGNESIUM
  8. HYDROCORTISONE. [Suspect]
     Active Substance: HYDROCORTISONE
  9. PROBIOTICS [Concomitant]
     Active Substance: PROBIOTICS NOS
  10. VITAMIN B12 [Concomitant]
     Active Substance: CYANOCOBALAMIN

REACTIONS (9)
  - Drug dependence [None]
  - Skin exfoliation [None]
  - Temperature regulation disorder [None]
  - Steroid withdrawal syndrome [None]
  - Drug abuse [None]
  - Skin weeping [None]
  - Erythema [None]
  - Skin erosion [None]
  - Accidental exposure to product [None]

NARRATIVE: CASE EVENT DATE: 20180208
